FAERS Safety Report 20233535 (Version 2)
Quarter: 2021Q4

REPORT INFORMATION
  Report Type: Report from Study
  Country: AU (occurrence: AU)
  Receive Date: 20211227
  Receipt Date: 20211230
  Transmission Date: 20220303
  Serious: Yes (Congenital Anomaly)
  Sender: FDA-Public Use
  Company Number: AU-UCBSA-2021059598

PATIENT
  Sex: Male

DRUGS (3)
  1. LACOSAMIDE [Suspect]
     Active Substance: LACOSAMIDE
     Indication: Epilepsy
     Dosage: 150 MILLIGRAM, 2X/DAY (BID)
     Route: 064
     Dates: end: 20110428
  2. LEVETIRACETAM [Suspect]
     Active Substance: LEVETIRACETAM
     Indication: Epilepsy
     Dosage: 1500 MILLIGRAM, 2X/DAY (BID)
     Route: 064
     Dates: end: 20110428
  3. TRILEPTAL [Concomitant]
     Active Substance: OXCARBAZEPINE
     Indication: Epilepsy

REACTIONS (2)
  - Anal atresia [Unknown]
  - Maternal exposure during pregnancy [Unknown]

NARRATIVE: CASE EVENT DATE: 20100101
